FAERS Safety Report 20962212 (Version 1)
Quarter: 2022Q2

REPORT INFORMATION
  Report Type: Spontaneous
  Country: US (occurrence: None)
  Receive Date: 20220614
  Receipt Date: 20220614
  Transmission Date: 20220720
  Serious: No
  Sender: FDA-Public Use
  Company Number: None

PATIENT
  Age: 65 Year
  Sex: Female

DRUGS (1)
  1. ATENOLOL [Suspect]
     Active Substance: ATENOLOL
     Dosage: FREQUENCY : DAILY;?
     Route: 048
     Dates: start: 20220527

REACTIONS (1)
  - Nausea [None]

NARRATIVE: CASE EVENT DATE: 20220614
